FAERS Safety Report 5188967-8 (Version None)
Quarter: 2006Q4

REPORT INFORMATION
  Report Type: 
  Country: None (occurrence: None)
  Receive Date: 20061221
  Receipt Date: 20061011
  Transmission Date: 20070319
  Serious: Yes (Other)
  Sender: FDA-Public Use
  Company Number: HU-AMGEN-UK196920

PATIENT
  Sex: Female
  Weight: 55 kg

DRUGS (10)
  1. KEPIVANCE [Suspect]
     Indication: MUCOSAL INFLAMMATION
     Route: 042
     Dates: start: 20060815, end: 20060826
  2. LANSOPRAZOLE [Concomitant]
     Route: 048
     Dates: start: 20060818, end: 20060826
  3. POTASSIUM CHLORIDE [Concomitant]
     Route: 048
     Dates: start: 20060815, end: 20060826
  4. FUROSEMIDE INTENSOL [Concomitant]
     Route: 048
     Dates: start: 20060815, end: 20060826
  5. SPIRONOLACTONE [Concomitant]
     Route: 048
     Dates: start: 20060815, end: 20060826
  6. ACYCLOVIR [Concomitant]
     Route: 048
     Dates: start: 20060818, end: 20060826
  7. FLUCONAZOLE [Concomitant]
     Route: 048
     Dates: start: 20060818, end: 20060826
  8. ALLOPURINOL [Concomitant]
     Route: 048
     Dates: start: 20060818, end: 20060826
  9. MEDROXYPROGESTERONE [Concomitant]
     Route: 048
     Dates: start: 20060818, end: 20060913
  10. CLONAZEPAM [Concomitant]
     Route: 048
     Dates: start: 20060818, end: 20060826

REACTIONS (10)
  - DYSGEUSIA [None]
  - ERYTHEMA [None]
  - FACE OEDEMA [None]
  - OEDEMA GENITAL [None]
  - ORAL MUCOSAL DISCOLOURATION [None]
  - OROPHARYNGEAL SWELLING [None]
  - PAIN [None]
  - PARAESTHESIA ORAL [None]
  - PRURITUS GENERALISED [None]
  - RASH [None]
